FAERS Safety Report 13381881 (Version 1)
Quarter: 2017Q1

REPORT INFORMATION
  Report Type: Report from Study
  Country: JP (occurrence: JP)
  Receive Date: 20170329
  Receipt Date: 20170329
  Transmission Date: 20170429
  Serious: Yes (Hospitalization)
  Sender: FDA-Public Use
  Company Number: PHHY2012JP141338

PATIENT
  Age: 54 Year
  Sex: Female
  Weight: 45 kg

DRUGS (10)
  1. XELODA [Suspect]
     Active Substance: CAPECITABINE
     Indication: PRODUCT USED FOR UNKNOWN INDICATION
     Dosage: 2400 MG,
     Route: 048
     Dates: start: 20110810, end: 20111209
  2. URSO [Concomitant]
     Active Substance: URSODIOL
     Indication: HEPATIC FUNCTION ABNORMAL
     Route: 048
     Dates: start: 20110311, end: 20111012
  3. ZOMETA [Concomitant]
     Active Substance: ZOLEDRONIC ACID
     Indication: PAIN PROPHYLAXIS
     Route: 041
     Dates: start: 20090324
  4. GASTER [Concomitant]
     Active Substance: FAMOTIDINE
     Indication: CANCER PAIN
     Route: 048
     Dates: start: 20110810, end: 20120104
  5. TYKERB [Suspect]
     Active Substance: LAPATINIB DITOSYLATE
     Dosage: 1000 MG, QD
     Route: 048
     Dates: start: 20111102, end: 20111215
  6. PROHEPARUM [Concomitant]
     Active Substance: CHOLINE BITARTRATE\CYSTEINE\INOSITOL\MAMMAL LIVER
     Indication: HEPATIC FUNCTION ABNORMAL
     Route: 048
     Dates: start: 20110311, end: 20110921
  7. TYKERB [Suspect]
     Active Substance: LAPATINIB DITOSYLATE
     Indication: BREAST CANCER
     Dosage: 1250 MG, QD
     Route: 048
     Dates: start: 20110810, end: 20111101
  8. CELECOX [Concomitant]
     Active Substance: CELECOXIB
     Indication: CANCER PAIN
     Route: 048
     Dates: start: 20110810
  9. TRAMAL [Concomitant]
     Active Substance: TRAMADOL
     Indication: CANCER PAIN
     Route: 048
     Dates: start: 20110810
  10. HEPARINOID [Concomitant]
     Active Substance: CHONDROITIN SULFATE (BOVINE)
     Indication: PROPHYLAXIS
     Route: 065
     Dates: start: 20110810, end: 20120208

REACTIONS (8)
  - Diarrhoea [Recovering/Resolving]
  - Paronychia [Recovered/Resolved]
  - Blood creatinine increased [Recovering/Resolving]
  - Dizziness [Recovering/Resolving]
  - Dehydration [Recovered/Resolved]
  - Palmar-plantar erythrodysaesthesia syndrome [Recovering/Resolving]
  - White blood cell count decreased [Recovered/Resolved]
  - Proctalgia [Recovered/Resolved]

NARRATIVE: CASE EVENT DATE: 20110817
